FAERS Safety Report 25287643 (Version 5)
Quarter: 2025Q3

REPORT INFORMATION
  Report Type: Spontaneous
  Country: US (occurrence: US)
  Receive Date: 20250509
  Receipt Date: 20250701
  Transmission Date: 20251021
  Serious: No
  Sender: PFIZER
  Company Number: US-PFIZER INC-202500090935

PATIENT
  Age: 17 Year
  Sex: Male
  Weight: 61.69 kg

DRUGS (2)
  1. GENOTROPIN [Suspect]
     Active Substance: SOMATROPIN
     Dosage: 2.2 MG PER DAY, 7 DAYS PER WEEK
  2. GENOTROPIN [Suspect]
     Active Substance: SOMATROPIN
     Dosage: EVERYDAY FOR 2.6 MG

REACTIONS (3)
  - Device defective [Unknown]
  - Device material issue [Unknown]
  - Device physical property issue [Unknown]
